FAERS Safety Report 8142551-2 (Version None)
Quarter: 2012Q1

REPORT INFORMATION
  Report Type: 
  Country: None (occurrence: None)
  Receive Date: 20120216
  Receipt Date: 20120202
  Transmission Date: 20120608
  Serious: Yes (Hospitalization)
  Sender: FDA-Public Use
  Company Number: ES-CELGENEUS-144-50794-12020389

PATIENT
  Age: 59 Year
  Sex: Male

DRUGS (2)
  1. ANTIBIOTICS [Concomitant]
     Route: 065
  2. VIDAZA [Suspect]
     Route: 050

REACTIONS (3)
  - OEDEMA PERIPHERAL [None]
  - PYREXIA [None]
  - RAYNAUD'S PHENOMENON [None]
